FAERS Safety Report 24230884 (Version 2)
Quarter: 2024Q3

REPORT INFORMATION
  Report Type: Spontaneous
  Country: US (occurrence: US)
  Receive Date: 20240821
  Receipt Date: 20240821
  Transmission Date: 20241017
  Serious: No
  Sender: ROCHE
  Company Number: US-ROCHE-10000058922

PATIENT
  Age: 34 Year
  Sex: Male
  Weight: 65.77 kg

DRUGS (2)
  1. OCREVUS [Suspect]
     Active Substance: OCRELIZUMAB
     Indication: Relapsing-remitting multiple sclerosis
     Route: 042
     Dates: start: 2021
  2. PAXLOVID [Concomitant]
     Active Substance: NIRMATRELVIR\RITONAVIR
     Dosage: TOOK 3 PILLS PER DAY FOR 5 DAYS
     Dates: start: 20240806, end: 20240811

REACTIONS (5)
  - COVID-19 [Recovered/Resolved]
  - Social anxiety disorder [Not Recovered/Not Resolved]
  - Feeling hot [Unknown]
  - Dizziness [Unknown]
  - Balance disorder [Unknown]

NARRATIVE: CASE EVENT DATE: 20240806
